FAERS Safety Report 20151080 (Version 1)
Quarter: 2021Q4

REPORT INFORMATION
  Report Type: Spontaneous
  Country: US (occurrence: None)
  Receive Date: 20211204
  Receipt Date: 20211204
  Transmission Date: 20220303
  Serious: Yes (Hospitalization)
  Sender: FDA-Public Use
  Company Number: None

PATIENT
  Age: 60 Year
  Sex: Male
  Weight: 121.56 kg

DRUGS (2)
  1. MELOXICAM [Suspect]
     Active Substance: MELOXICAM
     Indication: Pain
     Dates: start: 20210401, end: 20211021
  2. VALSARTAN [Suspect]
     Active Substance: VALSARTAN
     Indication: Hypertension
     Dosage: FREQUENCY : DAILY;?
     Route: 048
     Dates: start: 20180912

REACTIONS (5)
  - Angioedema [None]
  - Throat irritation [None]
  - Dyspnoea [None]
  - Extra dose administered [None]
  - Acute kidney injury [None]

NARRATIVE: CASE EVENT DATE: 20211021
